FAERS Safety Report 8227705-9 (Version None)
Quarter: 2012Q1

REPORT INFORMATION
  Report Type: 
  Country: None (occurrence: None)
  Receive Date: 20120322
  Receipt Date: 20120320
  Transmission Date: 20120608
  Serious: No
  Sender: FDA-Public Use
  Company Number: US-B.I. PHARMACEUTICALS,INC./RIDGEFIELD-2012-BP-05319BP

PATIENT
  Age: 76 Year
  Sex: Female

DRUGS (2)
  1. TRADJENTA [Suspect]
     Indication: TYPE 2 DIABETES MELLITUS
     Dosage: 5 MG
     Route: 048
  2. GLIPIZIDE [Concomitant]
     Route: 048

REACTIONS (3)
  - PALPITATIONS [None]
  - NAUSEA [None]
  - DIZZINESS [None]
